FAERS Safety Report 7815985-0 (Version None)
Quarter: 2011Q4

REPORT INFORMATION
  Report Type: 
  Country: None (occurrence: None)
  Receive Date: 20111014
  Receipt Date: 20110923
  Transmission Date: 20120403
  Serious: Yes (Other)
  Sender: FDA-Public Use
  Company Number: US-ROCHE-1000916

PATIENT
  Sex: Male

DRUGS (2)
  1. RIBAVIRIN [Suspect]
     Indication: HEPATITIS C
  2. PEGASYS [Suspect]
     Indication: HEPATITIS C
     Dates: start: 20110830

REACTIONS (3)
  - DECREASED APPETITE [None]
  - VITREOUS FLOATERS [None]
  - WEIGHT DECREASED [None]
